FAERS Safety Report 13334211 (Version 1)
Quarter: 2017Q1

REPORT INFORMATION
  Report Type: Spontaneous
  Country: US (occurrence: US)
  Receive Date: 20170314
  Receipt Date: 20170314
  Transmission Date: 20170428
  Serious: No
  Sender: FDA-Public Use
  Company Number: US-JNJFOC-20170109499

PATIENT
  Age: 24 Year
  Sex: Female

DRUGS (18)
  1. GABAPENTINE [Concomitant]
     Active Substance: GABAPENTIN
     Dosage: INCREASE 600-800MG.
     Route: 048
     Dates: start: 20161026
  2. OXYCODONE [Concomitant]
     Active Substance: OXYCODONE
     Indication: PAIN
     Dosage: 1-4 TAB EVERY 4 HOURS, PRN
     Route: 048
     Dates: start: 20161130
  3. IMBRUVICA [Suspect]
     Active Substance: IBRUTINIB
     Indication: CHRONIC GRAFT VERSUS HOST DISEASE
     Route: 048
     Dates: start: 20161026
  4. PREDNISONE. [Concomitant]
     Active Substance: PREDNISONE
     Route: 048
     Dates: start: 20161102
  5. DOCUSATE SODIUM. [Concomitant]
     Active Substance: DOCUSATE SODIUM
     Route: 048
     Dates: start: 20161026
  6. ACYCLOVIR. [Concomitant]
     Active Substance: ACYCLOVIR
     Route: 048
     Dates: start: 20160825
  7. NORTRIPTYLINE [Concomitant]
     Active Substance: NORTRIPTYLINE
     Route: 048
     Dates: start: 20161207
  8. VORICONAZOLE. [Concomitant]
     Active Substance: VORICONAZOLE
     Route: 048
     Dates: start: 20161207
  9. ZOFRAN [Concomitant]
     Active Substance: ONDANSETRON HYDROCHLORIDE
     Indication: VOMITING
  10. MORPHINE [Concomitant]
     Active Substance: MORPHINE
     Route: 048
     Dates: start: 20161207
  11. LORAZEPAM. [Concomitant]
     Active Substance: LORAZEPAM
     Indication: NAUSEA
     Dosage: 1DF
     Route: 048
     Dates: start: 20160922
  12. LORAZEPAM. [Concomitant]
     Active Substance: LORAZEPAM
     Indication: ANXIETY
     Dosage: 1DF
     Route: 048
     Dates: start: 20160922
  13. HYQVIA [Concomitant]
     Active Substance: HUMAN IMMUNOGLOBULIN G\HYALURONIDASE RECOMBINANT HUMAN
     Route: 058
  14. METOPROLOL TARTRATE. [Concomitant]
     Active Substance: METOPROLOL TARTRATE
     Route: 048
  15. CYMBALTA [Suspect]
     Active Substance: DULOXETINE HYDROCHLORIDE
     Indication: CHRONIC GRAFT VERSUS HOST DISEASE
     Route: 048
     Dates: start: 20161201
  16. TRIAMCINOLONE [Concomitant]
     Active Substance: TRIAMCINOLONE
     Route: 061
     Dates: start: 20161207
  17. SULFAMETHOXAZOLE\TRIMETHOPRIM [Concomitant]
     Active Substance: SULFAMETHOXAZOLE\TRIMETHOPRIM
     Dosage: 800MG - 160MG, 2 TIMES A DAY TWICE WEEKLY
     Route: 048
     Dates: start: 20161130
  18. ZOFRAN [Concomitant]
     Active Substance: ONDANSETRON HYDROCHLORIDE
     Indication: NAUSEA

REACTIONS (19)
  - Urge incontinence [Unknown]
  - Fatigue [Unknown]
  - Ecchymosis [Unknown]
  - Rash macular [Unknown]
  - Somnolence [Unknown]
  - Stress [Unknown]
  - Vitiligo [Unknown]
  - Erythema [Unknown]
  - Off label use [Unknown]
  - Oedema peripheral [Unknown]
  - Nightmare [Unknown]
  - Blister [Unknown]
  - Insomnia [Unknown]
  - Depression [Unknown]
  - Dysphagia [Unknown]
  - Product use issue [Unknown]
  - Blood blister [Unknown]
  - Disease progression [Unknown]
  - Drug administered to patient of inappropriate age [Unknown]

NARRATIVE: CASE EVENT DATE: 20161026
